FAERS Safety Report 9057212 (Version 1)
Quarter: 2013Q1

REPORT INFORMATION
  Report Type: Spontaneous
  Country: US (occurrence: US)
  Receive Date: 20130131
  Receipt Date: 20130131
  Transmission Date: 20140127
  Serious: Yes (Death, Life-Threatening, Other)
  Sender: FDA-Public Use
  Company Number: US-ROXANE LABORATORIES, INC.-2013-RO-00160RO

PATIENT
  Age: 56 Year
  Sex: Male

DRUGS (5)
  1. PREDNISONE [Suspect]
     Indication: LABYRINTHITIS
  2. FLUCONAZOLE [Suspect]
     Indication: CANDIDA INFECTION
     Route: 048
  3. MECLIZINE [Suspect]
     Indication: LABYRINTHITIS
  4. MICAFUNGIN [Suspect]
     Indication: CANDIDA INFECTION
     Route: 042
  5. VORICONAZOLE [Suspect]
     Indication: CANDIDA INFECTION

REACTIONS (7)
  - Death [Fatal]
  - Candida infection [Unknown]
  - Multi-organ failure [Unknown]
  - Renal failure acute [Unknown]
  - Diabetes mellitus inadequate control [Unknown]
  - Hydronephrosis [Unknown]
  - Drug resistance [Unknown]
